FAERS Safety Report 7345173-6 (Version None)
Quarter: 2011Q1

REPORT INFORMATION
  Report Type: 
  Country: None (occurrence: None)
  Receive Date: 20110310
  Receipt Date: 20110308
  Transmission Date: 20110831
  Serious: Yes (Death)
  Sender: FDA-Public Use
  Company Number: US-PFIZER INC-2011051626

PATIENT

DRUGS (3)
  1. LIPITOR [Suspect]
     Dosage: UNK
  2. CHANTIX [Suspect]
     Dosage: UNK
  3. NORVASC [Suspect]
     Dosage: UNK

REACTIONS (1)
  - DEATH [None]
